FAERS Safety Report 23277990 (Version 1)
Quarter: 2023Q4

REPORT INFORMATION
  Report Type: Spontaneous
  Country: CN (occurrence: CN)
  Receive Date: 20231208
  Receipt Date: 20231208
  Transmission Date: 20240110
  Serious: Yes (Other)
  Sender: FDA-Public Use
  Company Number: CN-FreseniusKabi-FK202320025

PATIENT
  Age: 55 Year
  Sex: Female

DRUGS (1)
  1. PROPOFOL [Suspect]
     Active Substance: PROPOFOL
     Indication: General anaesthesia
     Dosage: 2 MG/KG (TOTAL 108 MG) DOSES WITHIN 3 MINUTES
     Route: 042

REACTIONS (4)
  - Long-chain acyl-coenzyme A dehydrogenase deficiency [Recovered/Resolved]
  - Medium-chain acyl-coenzyme A dehydrogenase deficiency [Recovered/Resolved]
  - Short-chain acyl-coenzyme A dehydrogenase deficiency [Recovered/Resolved]
  - Rhabdomyolysis [Recovered/Resolved]
